FAERS Safety Report 25739769 (Version 1)
Quarter: 2025Q3

REPORT INFORMATION
  Report Type: Spontaneous
  Country: US (occurrence: None)
  Receive Date: 20250828
  Receipt Date: 20250828
  Transmission Date: 20251021
  Serious: Yes (Other)
  Sender: FDA-CTU
  Company Number: None

PATIENT
  Age: 76 Year
  Sex: Female

DRUGS (2)
  1. LENALIDOMIDE [Suspect]
     Active Substance: LENALIDOMIDE
     Indication: Plasma cell myeloma
     Dosage: FREQUENCY : DAILY;?
     Route: 048
     Dates: start: 20250214
  2. TOLODODEKIN ALFA [Suspect]
     Active Substance: TOLODODEKIN ALFA

REACTIONS (2)
  - Deep vein thrombosis [None]
  - Diarrhoea [None]

NARRATIVE: CASE EVENT DATE: 20250819
